FAERS Safety Report 6020712-6 (Version None)
Quarter: 2008Q4

REPORT INFORMATION
  Report Type: 
  Country: None (occurrence: None)
  Receive Date: 20081222
  Receipt Date: 20081210
  Transmission Date: 20090506
  Serious: Yes (Hospitalization)
  Sender: FDA-Public Use
  Company Number: US024782

PATIENT
  Age: 16 Year
  Sex: Female

DRUGS (10)
  1. MODAFINIL [Suspect]
     Indication: NARCOLEPSY
     Dosage: 200 MG DIVIDED INTO TWO DOSES ORAL
     Route: 048
     Dates: start: 20080710, end: 20080724
  2. MODAFINIL [Suspect]
     Indication: NARCOLEPSY
     Dosage: 300 MG DIVIDED INTO TWO DOSES ORAL
     Route: 048
     Dates: start: 20080725
  3. DEPAKENE [Concomitant]
  4. FLUVOXAMINE MALEATE [Concomitant]
  5. LORAZEPAM [Concomitant]
  6. MYSLEE [Concomitant]
  7. AMOXAN [Concomitant]
  8. LOXONIN [Concomitant]
  9. LENDORMIN [Concomitant]
  10. GASTER D [Concomitant]

REACTIONS (5)
  - DRUG EFFECT DECREASED [None]
  - IMPULSIVE BEHAVIOUR [None]
  - OVERDOSE [None]
  - SOMNOLENCE [None]
  - SUICIDE ATTEMPT [None]
